FAERS Safety Report 16061444 (Version 1)
Quarter: 2019Q2

REPORT INFORMATION
  Report Type: Spontaneous
  Country: AF (occurrence: AF)
  Receive Date: 20190312
  Receipt Date: 20190312
  Transmission Date: 20190711
  Serious: Yes (Other)
  Sender: FDA-Public Use
  Company Number: None

PATIENT
  Age: 53 Year
  Sex: Female
  Weight: 79.2 kg

DRUGS (2)
  1. SYNTHROID [Suspect]
     Active Substance: LEVOTHYROXINE SODIUM
     Indication: ADVERSE EVENT
     Route: 048
     Dates: start: 20090301, end: 20190312
  2. MACRODANTIN [Suspect]
     Active Substance: NITROFURANTOIN
     Indication: CYSTITIS
     Dates: start: 20090301, end: 20190312

REACTIONS (4)
  - Reaction to colouring [None]
  - Manufacturing materials issue [None]
  - Documented hypersensitivity to administered product [None]
  - Product complaint [None]

NARRATIVE: CASE EVENT DATE: 20180319
